FAERS Safety Report 5698338-3 (Version None)
Quarter: 2008Q2

REPORT INFORMATION
  Report Type: 
  Country: None (occurrence: None)
  Receive Date: 20080403
  Receipt Date: 20080325
  Transmission Date: 20081010
  Serious: Yes (Hospitalization)
  Sender: FDA-Public Use
  Company Number: DSA_29913_2007

PATIENT
  Age: 50 Year
  Sex: Male

DRUGS (4)
  1. RENIVACE (RENIVACE) 5 MG [Suspect]
     Indication: HYPERTENSION
     Dosage: 5 MG QD ORAL
     Route: 048
     Dates: start: 20070403, end: 20070501
  2. ENALAPARIL MALEATE (ENALAPRIL MALEATE) [Concomitant]
     Indication: HYPERTENSION
     Dosage: ORAL
     Route: 048
     Dates: end: 20070215
  3. CONIEL [Concomitant]
  4. XALATAN [Concomitant]

REACTIONS (5)
  - DRUG EFFECT DECREASED [None]
  - FALL [None]
  - HEAD INJURY [None]
  - HYPERSOMNIA [None]
  - LOSS OF CONSCIOUSNESS [None]
